FAERS Safety Report 6155825-1 (Version None)
Quarter: 2009Q2

REPORT INFORMATION
  Report Type: 
  Country: None (occurrence: None)
  Receive Date: 20090415
  Receipt Date: 20090403
  Transmission Date: 20091009
  Serious: Yes (Other)
  Sender: FDA-Public Use
  Company Number: GR-PFIZER INC-2009196059

PATIENT

DRUGS (2)
  1. SILDENAFIL CITRATE [Suspect]
     Indication: PULMONARY HYPERTENSION
     Dosage: FREQUENCY: X3/DAY,
     Route: 048
     Dates: start: 20090114, end: 20090202
  2. BOSENTAN [Suspect]
     Indication: PULMONARY ARTERIAL HYPERTENSION
     Dosage: FREQUENCY: 2X,
     Route: 048
     Dates: start: 20071201

REACTIONS (4)
  - COUGH [None]
  - FATIGUE [None]
  - PULMONARY ARTERIAL PRESSURE INCREASED [None]
  - TINNITUS [None]
